FAERS Safety Report 24895557 (Version 1)
Quarter: 2025Q1

REPORT INFORMATION
  Report Type: Spontaneous
  Country: US (occurrence: None)
  Receive Date: 20250128
  Receipt Date: 20250128
  Transmission Date: 20250409
  Serious: Yes (Hospitalization, Other)
  Sender: ACS DOBFAR
  Company Number: US-ACS-20250052

PATIENT
  Age: 61 Year
  Sex: Female

DRUGS (2)
  1. CEFTRIAXONE [Suspect]
     Active Substance: CEFTRIAXONE
     Indication: Urinary tract infection
     Route: 040
     Dates: start: 20241104, end: 20241104
  2. SALINE [Concomitant]
     Active Substance: SODIUM CHLORIDE

REACTIONS (6)
  - Paraesthesia oral [Recovered/Resolved]
  - Discomfort [Recovered/Resolved]
  - Suffocation feeling [Recovered/Resolved]
  - Oxygen saturation decreased [Recovered/Resolved]
  - Blood pressure decreased [Recovered/Resolved]
  - Heart rate decreased [Recovered/Resolved]

NARRATIVE: CASE EVENT DATE: 20241104
